FAERS Safety Report 6062664-9 (Version None)
Quarter: 2009Q1

REPORT INFORMATION
  Report Type: 
  Country: None (occurrence: None)
  Receive Date: 20090129
  Receipt Date: 20090114
  Transmission Date: 20090719
  Serious: Yes (Life-Threatening)
  Sender: FDA-Public Use
  Company Number: ESP08000057

PATIENT
  Age: 54 Year
  Sex: Female
  Weight: 70 kg

DRUGS (3)
  1. ACREL (RISEDRONATE SODIUM) TABLET, 35MG [Suspect]
     Indication: MUSCULOSKELETAL PAIN
     Dosage: 35 MG, 1 /WEEK, ORAL
     Route: 048
     Dates: start: 20081014
  2. QUINAPRIL HCL [Concomitant]
  3. LORAZEPAM [Concomitant]

REACTIONS (10)
  - BLOOD CALCIUM INCREASED [None]
  - BLOOD PRESSURE DECREASED [None]
  - BLOOD PRESSURE INCREASED [None]
  - CHEST DISCOMFORT [None]
  - DYSPNOEA [None]
  - HYPERHIDROSIS [None]
  - MOBILITY DECREASED [None]
  - MUSCULOSKELETAL CHEST PAIN [None]
  - NERVOUSNESS [None]
  - PAIN IN EXTREMITY [None]
